FAERS Safety Report 8939430 (Version 1)
Quarter: 2012Q4

REPORT INFORMATION
  Report Type: 
  Country: US (occurrence: US)
  Receive Date: 20121203
  Receipt Date: 20121203
  Transmission Date: 20130627
  Serious: Yes (Death)
  Sender: FDA-Public Use
  Company Number: US-JNJFOC-20121114807

PATIENT

DRUGS (7)
  1. DOXORUBICIN [Suspect]
     Indication: EWING^S SARCOMA
     Dosage: 37.5 mg/m2 on days 1 and 2 of each cycle
     Route: 042
  2. VINCRISTINE [Suspect]
     Indication: EWING^S SARCOMA
     Dosage: (maximum 2 mg) on day 1 of each cycle
     Route: 065
  3. CYCLOPHOSPHAMIDE [Suspect]
     Indication: EWING^S SARCOMA
     Dosage: on day 1 of each cycle
     Route: 065
  4. IFOSFAMIDE [Suspect]
     Indication: EWING^S SARCOMA
     Dosage: on days 1 through 5 of each cycle
     Route: 065
  5. ETOPOSIDE [Suspect]
     Indication: EWING^S SARCOMA
     Dosage: on days 1 through 5 of each cycle
     Route: 065
  6. RADIATION THERAPY [Suspect]
     Indication: EWING^S SARCOMA
     Route: 065
  7. FILGRASTIM [Concomitant]
     Dosage: maximum - 300 mg
     Route: 065

REACTIONS (2)
  - Death [Fatal]
  - Off label use [Unknown]
